FAERS Safety Report 9087471 (Version 1)
Quarter: 2013Q1

REPORT INFORMATION
  Report Type: Report from Study
  Country: US (occurrence: US)
  Receive Date: 20130201
  Receipt Date: 20130201
  Transmission Date: 20140127
  Serious: No
  Sender: FDA-Public Use
  Company Number: US-ABBOTT-12P-163-1027901-00

PATIENT
  Age: 24 Year
  Sex: Male

DRUGS (7)
  1. HUMIRA [Suspect]
     Indication: CROHN^S DISEASE
     Route: 058
     Dates: start: 20121017
  2. LIALDA [Concomitant]
     Indication: CROHN^S DISEASE
     Dosage: 1.2 GM 3 TABLETS DAILY
  3. ENTOCORT [Concomitant]
     Indication: CROHN^S DISEASE
     Dosage: 3 MG 2 TABLETS DAILY
  4. AZATHIOPRINE [Concomitant]
     Indication: CROHN^S DISEASE
     Dosage: 50 MG 4 TABLETS DAILY
  5. BUPROPION [Concomitant]
     Indication: DEPRESSION
     Dosage: 150 MG DAILY
  6. CLOMIPRAMINE [Concomitant]
     Indication: DEPRESSION
     Dosage: 50 MG 2 TABLETS DAILY
  7. MULTIVITAMIN [Concomitant]
     Indication: PRODUCT USED FOR UNKNOWN INDICATION
     Dosage: DAILY

REACTIONS (3)
  - Drug ineffective [Not Recovered/Not Resolved]
  - Influenza [Not Recovered/Not Resolved]
  - Crohn^s disease [Not Recovered/Not Resolved]
